FAERS Safety Report 9540533 (Version 9)
Quarter: 2016Q1

REPORT INFORMATION
  Report Type: Spontaneous
  Country: BR (occurrence: BR)
  Receive Date: 20130920
  Receipt Date: 20160304
  Transmission Date: 20160526
  Serious: Yes (Hospitalization, Other)
  Sender: FDA-Public Use
  Company Number: BR-PFIZER INC-2013251906

PATIENT
  Age: 44 Year
  Sex: Female
  Weight: 53 kg

DRUGS (6)
  1. VITAMIN C [Concomitant]
     Active Substance: ASCORBIC ACID
     Dosage: UNK
  2. FERROUS SULFATE [Concomitant]
     Active Substance: FERROUS SULFATE\FERROUS SULFATE, DRIED
     Dosage: UNK
  3. BUSCOPAN COMPOSITUM [Concomitant]
     Dosage: UNK
  4. PRIMOSISTON [Concomitant]
  5. SUTENT [Suspect]
     Active Substance: SUNITINIB MALATE
     Indication: METASTATIC RENAL CELL CARCINOMA
     Dosage: 50 MG, CYCLIC ONCE DAILY, CYCLE 4 PER 2
     Route: 048
     Dates: start: 20130822
  6. SUTENT [Suspect]
     Active Substance: SUNITINIB MALATE
     Dosage: 50 MG, CYCLIC, CYCLE 2X2
     Route: 048
     Dates: end: 201512

REACTIONS (25)
  - Discomfort [Unknown]
  - Oral pain [Not Recovered/Not Resolved]
  - Disease progression [Unknown]
  - Feeling hot [Not Recovered/Not Resolved]
  - Alopecia [Recovered/Resolved]
  - Bone pain [Unknown]
  - Swelling face [Recovered/Resolved]
  - Eye pruritus [Not Recovered/Not Resolved]
  - Vaginal haemorrhage [Recovered/Resolved]
  - Menorrhagia [Unknown]
  - Anaemia [Recovered/Resolved]
  - Hair colour changes [Unknown]
  - Musculoskeletal pain [Unknown]
  - Chapped lips [Not Recovered/Not Resolved]
  - Oedema mouth [Recovered/Resolved]
  - Metastatic renal cell carcinoma [Unknown]
  - Yellow skin [Recovered/Resolved]
  - Erythema [Not Recovered/Not Resolved]
  - Mouth injury [Recovered/Resolved]
  - Eye swelling [Recovered/Resolved]
  - Pain [Unknown]
  - Oral discomfort [Not Recovered/Not Resolved]
  - Blood pressure decreased [Unknown]
  - Back pain [Unknown]
  - Hot flush [Unknown]

NARRATIVE: CASE EVENT DATE: 2013
